FAERS Safety Report 17910381 (Version 1)
Quarter: 2020Q2

REPORT INFORMATION
  Report Type: Spontaneous
  Country: US (occurrence: US)
  Receive Date: 20200617
  Receipt Date: 20200617
  Transmission Date: 20200714
  Serious: No
  Sender: FDA-Public Use
  Company Number: US-BAXTER-2020BAX012193

PATIENT
  Age: 31 Year
  Sex: Female

DRUGS (1)
  1. PENICILLIN G POTASSIUM INJECTION, USP [Suspect]
     Active Substance: PENICILLIN G POTASSIUM
     Indication: INFECTION PROPHYLAXIS
     Dosage: 3 MILLION UNITS IN 50ML AT 06:19 AM
     Route: 042
     Dates: start: 20200604, end: 20200604

REACTIONS (3)
  - Incorrect drug administration rate [Unknown]
  - Exposure during pregnancy [Unknown]
  - Infusion site pain [Recovered/Resolved]

NARRATIVE: CASE EVENT DATE: 20200604
